FAERS Safety Report 18789609 (Version 1)
Quarter: 2021Q1

REPORT INFORMATION
  Report Type: Spontaneous
  Country: FR (occurrence: FR)
  Receive Date: 20210126
  Receipt Date: 20210126
  Transmission Date: 20210419
  Serious: Yes (Death)
  Sender: FDA-Public Use
  Company Number: FR-NOVOPROD-781851

PATIENT
  Sex: Male

DRUGS (1)
  1. NOVOSEVEN [Suspect]
     Active Substance: COAGULATION FACTOR VIIA RECOMBINANT HUMAN
     Indication: FACTOR V DEFICIENCY
     Dosage: UNK
     Route: 065
     Dates: start: 202011

REACTIONS (2)
  - COVID-19 [Fatal]
  - Off label use [Unknown]

NARRATIVE: CASE EVENT DATE: 202011
